APPROVED DRUG PRODUCT: OLMESARTAN MEDOXOMIL AND HYDROCHLOROTHIAZIDE
Active Ingredient: HYDROCHLOROTHIAZIDE; OLMESARTAN MEDOXOMIL
Strength: 25MG;40MG
Dosage Form/Route: TABLET;ORAL
Application: A217398 | Product #003 | TE Code: AB
Applicant: MSN LABORATORIES PRIVATE LTD
Approved: Sep 26, 2025 | RLD: No | RS: No | Type: RX